FAERS Safety Report 11520739 (Version 1)
Quarter: 2015Q3

REPORT INFORMATION
  Report Type: Spontaneous
  Country: KW (occurrence: KW)
  Receive Date: 20150918
  Receipt Date: 20150918
  Transmission Date: 20151125
  Serious: Yes (Other)
  Sender: FDA-Public Use
  Company Number: KW-ELI_LILLY_AND_COMPANY-KW201509004875

PATIENT
  Sex: Female

DRUGS (1)
  1. CYMBALTA [Suspect]
     Active Substance: DULOXETINE HYDROCHLORIDE
     Indication: DEPRESSION
     Dosage: 1 DF, UNKNOWN
     Route: 065
     Dates: start: 201504

REACTIONS (7)
  - Paralysis [Unknown]
  - Joint stiffness [Unknown]
  - Asthenia [Unknown]
  - Fatigue [Unknown]
  - Dry mouth [Unknown]
  - Tremor [Unknown]
  - Abasia [Unknown]
